FAERS Safety Report 10185506 (Version 2)
Quarter: 2014Q2

REPORT INFORMATION
  Report Type: Spontaneous
  Country: GB (occurrence: GB)
  Receive Date: 20140521
  Receipt Date: 20140612
  Transmission Date: 20141212
  Serious: Yes (Hospitalization)
  Sender: FDA-Public Use
  Company Number: GB-AMGEN-GBRSP2014036955

PATIENT
  Age: 77 Year
  Sex: Male

DRUGS (3)
  1. NEULASTA [Suspect]
     Indication: NEUTROPENIA
     Dosage: 6 MG IN 0.6 ML, FORTNIGHTLY AFTER DAY 1 OF CHEMO
     Route: 065
     Dates: start: 20130515
  2. GEMCITABINE [Concomitant]
     Indication: BLADDER CANCER
     Dosage: UNK
     Dates: start: 201305
  3. CISPLATIN [Concomitant]
     Indication: BLADDER CANCER
     Dosage: UNK
     Dates: start: 201305

REACTIONS (2)
  - Neutropenia [Recovered/Resolved]
  - Drug ineffective [Unknown]
